FAERS Safety Report 20930459 (Version 1)
Quarter: 2022Q2

REPORT INFORMATION
  Report Type: Spontaneous
  Country: US (occurrence: US)
  Receive Date: 20220608
  Receipt Date: 20220608
  Transmission Date: 20220721
  Serious: No
  Sender: FDA-Public Use
  Company Number: US-PERRIGO-22US005177

PATIENT
  Age: 66 Year
  Sex: Female
  Weight: 63.492 kg

DRUGS (3)
  1. MINOXIDIL [Suspect]
     Active Substance: MINOXIDIL
     Indication: Alopecia
     Dosage: 1/2 CAPFUL, QD
     Route: 061
     Dates: start: 20211201, end: 20220131
  2. MINOXIDIL [Suspect]
     Active Substance: MINOXIDIL
     Dosage: 1/2 CAPFUL, QD
     Route: 061
     Dates: start: 20220201, end: 20220403
  3. NYSTATIN [Concomitant]
     Active Substance: NYSTATIN
     Indication: Blood cholesterol
     Dosage: UNK, UNK
     Route: 065

REACTIONS (1)
  - Drug ineffective [Unknown]

NARRATIVE: CASE EVENT DATE: 20211201
